FAERS Safety Report 18853045 (Version 1)
Quarter: 2021Q1

REPORT INFORMATION
  Report Type: Spontaneous
  Country: JP (occurrence: JP)
  Receive Date: 20210205
  Receipt Date: 20210205
  Transmission Date: 20210420
  Serious: Yes (Hospitalization, Other)
  Sender: FDA-Public Use
  Company Number: JP-GLAXOSMITHKLINE-JP2021JPN025340

PATIENT
  Age: 46 Year
  Sex: Male

DRUGS (2)
  1. LOXOPROFEN [Suspect]
     Active Substance: LOXOPROFEN
     Indication: HERPES ZOSTER
     Dosage: UNK
  2. VALACICLOVIR HYDROCHLORIDE [Suspect]
     Active Substance: VALACYCLOVIR HYDROCHLORIDE
     Indication: HERPES ZOSTER
     Dosage: UNK
     Route: 048

REACTIONS (9)
  - Dehydration [Unknown]
  - Pyrexia [Unknown]
  - Rash [Recovering/Resolving]
  - Erysipelas [Unknown]
  - Decreased appetite [Unknown]
  - Acute kidney injury [Recovering/Resolving]
  - Oliguria [Unknown]
  - Renal tubular disorder [Unknown]
  - Bacterial infection [Unknown]
